FAERS Safety Report 9257767 (Version 2)
Quarter: 2014Q1

REPORT INFORMATION
  Report Type: Spontaneous
  Country: US (occurrence: None)
  Receive Date: 20121212
  Receipt Date: 20130314
  Transmission Date: 20141002
  Serious: No
  Sender: FDA-Public Use
  Company Number: 1208USA012329

PATIENT
  Age: 55 Year
  Sex: Female

DRUGS (3)
  1. REBETOL(RIBAVIRIN) CAPSULE [Suspect]
     Indication: HEPATITIS C
     Dates: start: 20120614, end: 2012
  2. VICTRELIS [Suspect]
     Indication: HEPATITIS C
     Dates: start: 20120713, end: 2012
  3. PEGASYS (PEGINTERFERON ALFA-2A) [Suspect]
     Indication: HEPATITIS C
     Dates: start: 20120614

REACTIONS (10)
  - Bone pain [None]
  - Red blood cell count decreased [None]
  - Fatigue [None]
  - Asthenia [None]
  - Anaemia [None]
  - Decreased appetite [None]
  - Hypoaesthesia [None]
  - Pruritus generalised [None]
  - Drug ineffective [None]
  - Anaemia [None]
